FAERS Safety Report 14294949 (Version 2)
Quarter: 2018Q1

REPORT INFORMATION
  Report Type: Spontaneous
  Country: US (occurrence: US)
  Receive Date: 20171218
  Receipt Date: 20180108
  Transmission Date: 20180509
  Serious: Yes (Other)
  Sender: FDA-Public Use
  Company Number: PHEH2017US040231

PATIENT
  Age: 80 Year
  Sex: Male

DRUGS (5)
  1. GLEEVEC [Suspect]
     Active Substance: IMATINIB MESYLATE
     Indication: GASTROINTESTINAL STROMAL TUMOUR
     Dosage: 400 MG, QD
     Route: 065
  2. VITAMIN D3 [Concomitant]
     Active Substance: CHOLECALCIFEROL
     Indication: PRODUCT USED FOR UNKNOWN INDICATION
     Route: 065
  3. GLEEVEC [Suspect]
     Active Substance: IMATINIB MESYLATE
     Dosage: 200 MG, TIW
     Route: 065
  4. CALCITRIOL. [Concomitant]
     Active Substance: CALCITRIOL
     Indication: PRODUCT USED FOR UNKNOWN INDICATION
     Route: 065
  5. GLEEVEC [Suspect]
     Active Substance: IMATINIB MESYLATE
     Dosage: 200 MG, QD
     Route: 065

REACTIONS (16)
  - Hyperparathyroidism secondary [Unknown]
  - Haemoglobin decreased [Unknown]
  - Fatigue [Unknown]
  - Hypophosphataemia [Unknown]
  - Chronic kidney disease [Unknown]
  - Blood parathyroid hormone increased [Unknown]
  - Anaemia [Unknown]
  - Renal failure [Unknown]
  - Thyroid mass [Unknown]
  - Blood creatinine increased [Unknown]
  - Nephrogenic anaemia [Unknown]
  - Hyperparathyroidism [Unknown]
  - Haematocrit decreased [Unknown]
  - Creatinine renal clearance increased [Unknown]
  - Blood erythropoietin decreased [Unknown]
  - Anxiety [Unknown]
